FAERS Safety Report 17994871 (Version 1)
Quarter: 2020Q3

REPORT INFORMATION
  Report Type: Report from Study
  Country: RO (occurrence: RO)
  Receive Date: 20200708
  Receipt Date: 20200708
  Transmission Date: 20201103
  Serious: Yes (Hospitalization)
  Sender: FDA-Public Use
  Company Number: RO-GILEAD-2020-0479822

PATIENT
  Age: 52 Year
  Sex: Male
  Weight: 75 kg

DRUGS (7)
  1. LEDIPASVIR/SOFOSBUVIR [Suspect]
     Active Substance: LEDIPASVIR\SOFOSBUVIR
     Indication: CHRONIC HEPATITIS C
     Dosage: 1 DOSAGE FORM, QD
     Route: 048
     Dates: start: 20200307, end: 20200501
  2. PREDNISON [Concomitant]
     Active Substance: PREDNISONE
     Dosage: 1 UNK
     Dates: start: 20200702
  3. CONTROLOC [Concomitant]
     Active Substance: PANTOPRAZOLE SODIUM
     Dosage: 1 UNK
  4. OMERAN [Concomitant]
     Dosage: 1 UNK
     Dates: start: 20200702
  5. GABARAN [Concomitant]
     Active Substance: GABAPENTIN
     Dosage: 1 UNK
     Dates: start: 20200702
  6. TRAMADOL. [Concomitant]
     Active Substance: TRAMADOL
     Dosage: UNK UNK, BID
     Dates: start: 20200702
  7. LEFLUNOMIDA [Concomitant]
     Active Substance: LEFLUNOMIDE
     Dosage: 1 UNK
     Dates: start: 20200702

REACTIONS (10)
  - Chills [Recovered/Resolved]
  - Dyspnoea [Recovered/Resolved]
  - Dehydration [Recovered/Resolved]
  - Anaemia [Recovering/Resolving]
  - Pyrexia [Recovered/Resolved]
  - Decreased appetite [Recovered/Resolved]
  - Weight decreased [Not Recovered/Not Resolved]
  - Dizziness [Recovered/Resolved]
  - Asthenia [Recovered/Resolved]
  - Chronic gastritis [Recovered/Resolved]

NARRATIVE: CASE EVENT DATE: 202005
